FAERS Safety Report 25245458 (Version 1)
Quarter: 2025Q2

REPORT INFORMATION
  Report Type: Spontaneous
  Country: US (occurrence: None)
  Receive Date: 20250426
  Receipt Date: 20250426
  Transmission Date: 20250717
  Serious: Yes (Life-Threatening, Hospitalization)
  Sender: FDA-CTU
  Company Number: None

PATIENT
  Age: 73 Year
  Sex: Female
  Weight: 94.05 kg

DRUGS (1)
  1. KISUNLA [Suspect]
     Active Substance: DONANEMAB-AZBT
     Indication: Dementia Alzheimer^s type
     Dates: start: 20250206, end: 20250220

REACTIONS (4)
  - Amyloid related imaging abnormalities [None]
  - Headache [None]
  - Brain oedema [None]
  - Cerebral haemorrhage [None]

NARRATIVE: CASE EVENT DATE: 20250325
